FAERS Safety Report 7142269-9 (Version None)
Quarter: 2010Q4

REPORT INFORMATION
  Report Type: 
  Country: None (occurrence: None)
  Receive Date: 20101203
  Receipt Date: 20101203
  Transmission Date: 20110411
  Serious: Yes (Other)
  Sender: FDA-Public Use
  Company Number: None

PATIENT
  Sex: Female
  Weight: 92.0802 kg

DRUGS (1)
  1. SEROQUEL [Suspect]
     Indication: BIPOLAR II DISORDER
     Dosage: 1 TABLET DAILY PO
     Route: 048
     Dates: start: 20050617, end: 20050722

REACTIONS (4)
  - BACK PAIN [None]
  - DEPRESSION [None]
  - HYPERTENSION [None]
  - WEIGHT INCREASED [None]
